FAERS Safety Report 6579330-3 (Version None)
Quarter: 2010Q1

REPORT INFORMATION
  Report Type: 
  Country: None (occurrence: None)
  Receive Date: 20100209
  Receipt Date: 20100209
  Transmission Date: 20100710
  Serious: Yes (Other)
  Sender: FDA-Public Use
  Company Number: None

PATIENT
  Age: 9 Year
  Sex: Male
  Weight: 30.391 kg

DRUGS (1)
  1. TRIAMINIC-12 [Suspect]
     Indication: OROPHARYNGEAL PAIN
     Dosage: 2 TEASPOONSFUL 1 EVERY 4 HOURS
     Dates: start: 20100202, end: 20100203

REACTIONS (2)
  - BRAIN OEDEMA [None]
  - PARAESTHESIA [None]
